FAERS Safety Report 10190214 (Version 2)
Quarter: 2014Q2

REPORT INFORMATION
  Report Type: Spontaneous
  Country: US (occurrence: US)
  Receive Date: 20140522
  Receipt Date: 20140522
  Transmission Date: 20141212
  Serious: No
  Sender: FDA-Public Use
  Company Number: US-ASTRAZENECA-2013SE86032

PATIENT
  Age: 73 Year
  Sex: Female

DRUGS (2)
  1. PULMICORT FLEXHALER [Suspect]
     Indication: ASTHMA
     Route: 055
     Dates: start: 201211
  2. VENTOLIN HFA [Concomitant]
     Indication: INHALATION THERAPY
     Dosage: TWO PUFFS Q4-6H
     Route: 055
     Dates: start: 20131024

REACTIONS (9)
  - Pneumonia [Unknown]
  - Bronchitis [Unknown]
  - Viral infection [Unknown]
  - Rhinorrhoea [Unknown]
  - Asthenia [Not Recovered/Not Resolved]
  - Multiple allergies [Not Recovered/Not Resolved]
  - Adverse event [Unknown]
  - Circumstance or information capable of leading to medication error [Not Recovered/Not Resolved]
  - Intentional product misuse [Unknown]
